FAERS Safety Report 17684919 (Version 1)
Quarter: 2020Q2

REPORT INFORMATION
  Report Type: Spontaneous
  Country: US (occurrence: US)
  Receive Date: 20200420
  Receipt Date: 20200420
  Transmission Date: 20200714
  Serious: No
  Sender: FDA-Public Use
  Company Number: US-EPIC PHARMA LLC-2019EPC00269

PATIENT
  Age: 67 Year
  Sex: Female

DRUGS (2)
  1. SULINDAC. [Suspect]
     Active Substance: SULINDAC
     Indication: ARTHRITIS
  2. SULINDAC. [Suspect]
     Active Substance: SULINDAC
     Indication: ARTHRITIS
     Dosage: UNK

REACTIONS (2)
  - Product substitution issue [Not Recovered/Not Resolved]
  - Therapeutic product effect incomplete [Not Recovered/Not Resolved]
